FAERS Safety Report 22661371 (Version 1)
Quarter: 2023Q2

REPORT INFORMATION
  Report Type: Spontaneous
  Country: US (occurrence: US)
  Receive Date: 20230630
  Receipt Date: 20230630
  Transmission Date: 20230721
  Serious: Yes (Other)
  Sender: FDA-Public Use
  Company Number: US-BRISTOL-MYERS SQUIBB COMPANY-2023-090469

PATIENT
  Age: 53 Year
  Sex: Female

DRUGS (2)
  1. NIVOLUMAB [Suspect]
     Active Substance: NIVOLUMAB
     Indication: Fibrosarcoma metastatic
  2. IPILIMUMAB [Suspect]
     Active Substance: IPILIMUMAB
     Indication: Fibrosarcoma metastatic

REACTIONS (1)
  - Immune-mediated pancreatitis [Unknown]
